FAERS Safety Report 16228495 (Version 1)
Quarter: 2019Q2

REPORT INFORMATION
  Report Type: Spontaneous
  Country: US (occurrence: US)
  Receive Date: 20190422
  Receipt Date: 20190422
  Transmission Date: 20190711
  Serious: Yes (Hospitalization, Other)
  Sender: FDA-Public Use
  Company Number: None

PATIENT
  Age: 70 Year
  Sex: Male

DRUGS (5)
  1. TACROLIMUS. [Suspect]
     Active Substance: TACROLIMUS
     Indication: RENAL TRANSPLANT
     Dosage: ?          OTHER FREQUENCY:DAILY AS DIRECTED;?
     Route: 048
     Dates: start: 20130422
  2. PROSTATE [Concomitant]
     Active Substance: DIETARY SUPPLEMENT
  3. METOPROLOL. [Concomitant]
     Active Substance: METOPROLOL
  4. PROGRAF [Concomitant]
     Active Substance: TACROLIMUS\TACROLIMUS ANHYDROUS
  5. PREDNISONE. [Concomitant]
     Active Substance: PREDNISONE

REACTIONS (1)
  - Cancer surgery [None]

NARRATIVE: CASE EVENT DATE: 20190417
